FAERS Safety Report 6381982-8 (Version None)
Quarter: 2009Q3

REPORT INFORMATION
  Report Type: 
  Country: None (occurrence: None)
  Receive Date: 20090930
  Receipt Date: 20090922
  Transmission Date: 20100115
  Serious: Yes (Other)
  Sender: FDA-Public Use
  Company Number: ES-ROCHE-658366

PATIENT
  Sex: Male

DRUGS (1)
  1. TAMIFLU [Suspect]
     Dosage: FORM: HARD CAPSULE
     Route: 064
     Dates: start: 20090917, end: 20090921

REACTIONS (1)
  - STATUS EPILEPTICUS [None]
